FAERS Safety Report 8336853-4 (Version None)
Quarter: 2012Q2

REPORT INFORMATION
  Report Type: 
  Country: None (occurrence: None)
  Receive Date: 20120504
  Receipt Date: 20120503
  Transmission Date: 20120825
  Serious: No
  Sender: FDA-Public Use
  Company Number: US-BAYER-2012-043314

PATIENT
  Sex: Female

DRUGS (9)
  1. PRILOSEC [Concomitant]
     Dosage: 10 MG, UNK
  2. HYDROCHLOROTHIAZIDE [Concomitant]
     Dosage: 12.5 MG, UNK
  3. PREDNISONE [Concomitant]
     Dosage: 5 MG, UNK
  4. COZAAR [Concomitant]
     Dosage: 25 MG, UNK
  5. NAPROXEN SODIUM AND PSEUDOEPHEDRINE HYDROCHLORIDE [Concomitant]
     Dosage: 250 MG, UNK
  6. BETASERON [Suspect]
     Indication: PRODUCT USED FOR UNKNOWN INDICATION
     Dosage: 0.25 MG, QOD
     Route: 058
  7. METFORMIN HCL [Concomitant]
     Dosage: 500 MG, UNK
  8. TYLENOL REGULAR [Concomitant]
     Dosage: 500 MG, UNK
  9. VITAMIN D [Concomitant]
     Dosage: UNK

REACTIONS (1)
  - HEADACHE [None]
